FAERS Safety Report 11620973 (Version 5)
Quarter: 2022Q2

REPORT INFORMATION
  Report Type: Report from Study
  Country: MX (occurrence: MX)
  Receive Date: 20151012
  Receipt Date: 20220409
  Transmission Date: 20220721
  Serious: Yes (Other)
  Sender: FDA-Public Use
  Company Number: PHHY2015MX121561

PATIENT
  Age: 73 Year
  Sex: Female
  Weight: 67 kg

DRUGS (8)
  1. HYDROCHLOROTHIAZIDE\VALSARTAN [Suspect]
     Active Substance: HYDROCHLOROTHIAZIDE\VALSARTAN
     Indication: Hypertension
     Dosage: 0.5 DF (160/12.5), QD
     Route: 065
     Dates: start: 2007
  2. HYDROCHLOROTHIAZIDE\VALSARTAN [Suspect]
     Active Substance: HYDROCHLOROTHIAZIDE\VALSARTAN
     Dosage: 1 DOSAGE FORM, QD (160/12.5 MG) STARETD APPROXIMATELY 15 YEARS AGO
     Route: 048
  3. GAAP OFTENO [Concomitant]
     Indication: Product used for unknown indication
     Route: 065
  4. LATANOPROST [Concomitant]
     Active Substance: LATANOPROST
     Indication: Product used for unknown indication
     Route: 065
  5. DOXYLAMINE [Concomitant]
     Active Substance: DOXYLAMINE
     Indication: Product used for unknown indication
     Route: 065
  6. VERISAN [Concomitant]
     Indication: Peripheral vascular disorder
     Dosage: 1 DF, QD (EVERY 24 HOURS, SINCE 12 YEARS AGO)
     Route: 048
  7. NAXODOL [Concomitant]
     Indication: Cervix disorder
     Dosage: 1 DF, QHS (AT NIGHT) (SINCE 18 YEARS AGO)
     Route: 048
  8. ASPIRIN [Concomitant]
     Active Substance: ASPIRIN
     Indication: Product used for unknown indication
     Dosage: MONDAYS, WEDNWSDAYS, FRIDAYS
     Route: 065

REACTIONS (5)
  - Maculopathy [Not Recovered/Not Resolved]
  - Myopia [Unknown]
  - Astigmatism [Unknown]
  - Blood pressure decreased [Not Recovered/Not Resolved]
  - Wrong technique in product usage process [Not Recovered/Not Resolved]

NARRATIVE: CASE EVENT DATE: 20220212
